FAERS Safety Report 6108324-7 (Version None)
Quarter: 2009Q1

REPORT INFORMATION
  Report Type: 
  Country: None (occurrence: None)
  Receive Date: 20090309
  Receipt Date: 20090223
  Transmission Date: 20090719
  Serious: Yes (Hospitalization)
  Sender: FDA-Public Use
  Company Number: GB-ROCHE-616519

PATIENT
  Sex: Female
  Weight: 59.8 kg

DRUGS (3)
  1. CAPECITABINE [Suspect]
     Indication: BREAST CANCER
     Dosage: LAST DOSE PRIOR TO SAE: 16 JAN 2009, THERAPY DELAYED
     Route: 048
     Dates: start: 20081028
  2. EPIRUBICIN [Suspect]
     Indication: BREAST CANCER
     Dosage: LAST DOSE PRIOR TO SAE: 16 JAN 2009, THERAPY DELAYED
     Route: 042
     Dates: start: 20081028
  3. NEULASTA [Suspect]
     Indication: BREAST CANCER
     Dosage: LAST DOSE PRIOR TO SAE: 16 JAN 2009, THERAPY DELAYED
     Route: 042
     Dates: start: 20081028

REACTIONS (2)
  - MOUTH ULCERATION [None]
  - SWELLING FACE [None]
